FAERS Safety Report 16923143 (Version 4)
Quarter: 2019Q4

REPORT INFORMATION
  Report Type: Report from Study
  Country: None (occurrence: GB)
  Receive Date: 20191016
  Receipt Date: 20191127
  Transmission Date: 20200122
  Serious: Yes (Hospitalization, Other)
  Sender: FDA-Public Use
  Company Number: GB-ABBVIE-19K-167-2956884-00

PATIENT
  Sex: Female

DRUGS (4)
  1. DUODOPA [Suspect]
     Active Substance: CARBIDOPA\LEVODOPA
     Dosage: CONTINUOUS DOSE INCREASED TO 3.9MLS
     Route: 050
     Dates: start: 201910, end: 2019
  2. DUODOPA [Suspect]
     Active Substance: CARBIDOPA\LEVODOPA
     Dosage: 1.5 CASSETTE PER DAY
     Route: 050
     Dates: start: 2019, end: 2019
  3. DUODOPA [Suspect]
     Active Substance: CARBIDOPA\LEVODOPA
     Dosage: 1 CASSETTE PER DAY
     Route: 050
     Dates: start: 2019, end: 201911
  4. DUODOPA [Suspect]
     Active Substance: CARBIDOPA\LEVODOPA
     Indication: PARKINSON^S DISEASE
     Dosage: 5MG/1ML?20MG/1ML?100ML INTESTINAL GEL CASSETTE DAILY
     Route: 050
     Dates: end: 201910

REACTIONS (7)
  - Pneumonia [Unknown]
  - Pneumoperitoneum [Recovering/Resolving]
  - Feeling abnormal [Unknown]
  - Abdominal pain [Recovering/Resolving]
  - Stoma site extravasation [Recovering/Resolving]
  - Coma [Unknown]
  - Adverse drug reaction [Unknown]

NARRATIVE: CASE EVENT DATE: 2019
